FAERS Safety Report 20631106 (Version 2)
Quarter: 2022Q3

REPORT INFORMATION
  Report Type: Spontaneous
  Country: US (occurrence: US)
  Receive Date: 20220324
  Receipt Date: 20220916
  Transmission Date: 20221027
  Serious: No
  Sender: FDA-Public Use
  Company Number: US-BAYER-2022A036146

PATIENT
  Sex: Female

DRUGS (2)
  1. MIRENA [Suspect]
     Active Substance: LEVONORGESTREL
     Indication: Contraception
     Dosage: 20?G/DAY
     Route: 015
     Dates: start: 201904
  2. KEVZARA [Concomitant]
     Active Substance: SARILUMAB
     Indication: Juvenile idiopathic arthritis

REACTIONS (3)
  - Arthralgia [None]
  - Joint swelling [None]
  - Pyrexia [None]
